FAERS Safety Report 4715574-0 (Version None)
Quarter: 2005Q3

REPORT INFORMATION
  Report Type: 
  Country: None (occurrence: None)
  Receive Date: 20050715
  Receipt Date: 20050715
  Transmission Date: 20060218
  Serious: Yes (Other)
  Sender: FDA-Public Use
  Company Number: None

PATIENT
  Sex: Male
  Weight: 74.1 kg

DRUGS (2)
  1. CISPLATIN [Suspect]
     Indication: NEOPLASM MALIGNANT
     Dosage: 100MG/M2 ON DAYS 1,22,43
     Dates: start: 20050502, end: 20050613
  2. RADIATION [Suspect]
     Dosage: 70 GY/ 35 FX FOR 7 WEEKS
     Dates: end: 20050620

REACTIONS (6)
  - BODY TEMPERATURE INCREASED [None]
  - DYSPHAGIA [None]
  - ODYNOPHAGIA [None]
  - PRODUCTIVE COUGH [None]
  - REFUSAL OF TREATMENT BY PATIENT [None]
  - RENAL FAILURE ACUTE [None]
